FAERS Safety Report 4978479-6 (Version None)
Quarter: 2006Q2

REPORT INFORMATION
  Report Type: 
  Country: None (occurrence: None)
  Receive Date: 20060417
  Receipt Date: 20060404
  Transmission Date: 20061013
  Serious: Yes (Death)
  Sender: FDA-Public Use
  Company Number: 163-21880-06020550

PATIENT
  Age: 82 Year
  Sex: Male
  Weight: 92.9874 kg

DRUGS (10)
  1. REVLIMID [Suspect]
     Indication: ACUTE LEUKAEMIA
     Dosage: 10 MG, DAILY, ORAL
     Route: 048
     Dates: start: 20060210, end: 20060101
  2. GLYBURIDE [Concomitant]
  3. SIMVASTATIN [Concomitant]
  4. LISINOPRIL [Concomitant]
  5. WARFARIN SODIUM [Concomitant]
  6. CARVEDILOL [Concomitant]
  7. SPIRONOLACTONE [Concomitant]
  8. METFORMIN [Concomitant]
  9. MULTIVITAMIN [Concomitant]
  10. EYE DROPS [Concomitant]

REACTIONS (3)
  - MUSCULOSKELETAL STIFFNESS [None]
  - MYALGIA [None]
  - NECK PAIN [None]
